FAERS Safety Report 19274974 (Version 2)
Quarter: 2021Q3

REPORT INFORMATION
  Report Type: Report from Study
  Country: FR (occurrence: FR)
  Receive Date: 20210519
  Receipt Date: 20210723
  Transmission Date: 20211014
  Serious: Yes (Life-Threatening, Hospitalization)
  Sender: FDA-Public Use
  Company Number: FR-TEVA-2021-FR-1912308

PATIENT
  Age: 3 Year
  Sex: Male

DRUGS (1)
  1. CLAVULANIC ACID/ AMOXICILLIN [Suspect]
     Active Substance: AMOXICILLIN\CLAVULANIC ACID
     Indication: ANTIBIOTIC THERAPY
     Route: 065

REACTIONS (2)
  - Drug hypersensitivity [Unknown]
  - Shock [Unknown]
